FAERS Safety Report 9418867 (Version 1)
Quarter: 2013Q3

REPORT INFORMATION
  Report Type: Spontaneous
  Country: CA (occurrence: CA)
  Receive Date: 20130725
  Receipt Date: 20130725
  Transmission Date: 20140515
  Serious: Yes (Life-Threatening, Hospitalization)
  Sender: FDA-Public Use
  Company Number: CA-JNJFOC-20130711370

PATIENT
  Age: 79 Year
  Sex: Female
  Weight: 80 kg

DRUGS (17)
  1. XARELTO [Suspect]
     Indication: PRODUCT USED FOR UNKNOWN INDICATION
     Route: 048
  2. DIMENHYDRINATE [Concomitant]
     Route: 065
  3. GLYCERIN [Concomitant]
     Route: 065
  4. SODIUM CHLORIDE [Concomitant]
     Route: 065
  5. FRAGMIN [Concomitant]
     Route: 042
  6. MILK OF MAGNESIA [Concomitant]
     Route: 065
  7. NITROLINGUAL [Concomitant]
     Route: 065
  8. ONDANSETRON [Concomitant]
     Route: 065
  9. PRAVASTATIN SODIUM [Concomitant]
     Route: 048
  10. RATIO-OXYCOCET [Concomitant]
     Route: 048
  11. SENNA [Concomitant]
     Route: 065
  12. SYNTHROID [Concomitant]
     Route: 048
  13. ATENOLOL [Concomitant]
     Route: 048
  14. ATASOL [Concomitant]
     Route: 065
  15. APO-TEMAZEPAM [Concomitant]
     Route: 048
  16. LANSOPRAZOLE [Concomitant]
     Route: 048
  17. APO-ACETAMINOPHEN [Concomitant]
     Route: 048

REACTIONS (2)
  - Pulmonary embolism [Unknown]
  - Drug ineffective [Unknown]
